FAERS Safety Report 9439148 (Version 1)
Quarter: 2013Q3

REPORT INFORMATION
  Report Type: Report from Study
  Country: CO (occurrence: CO)
  Receive Date: 20130802
  Receipt Date: 20130802
  Transmission Date: 20140515
  Serious: Yes (Hospitalization)
  Sender: FDA-Public Use
  Company Number: CO-ASTRAZENECA-2013SE56835

PATIENT
  Age: 66 Year
  Sex: Male

DRUGS (6)
  1. BRILINTA [Suspect]
     Indication: ACUTE CORONARY SYNDROME
     Route: 048
     Dates: start: 20130722
  2. ENALAPRIL [Concomitant]
     Route: 048
  3. ATROVASTATIN [Concomitant]
     Route: 048
  4. ASA [Concomitant]
     Route: 048
  5. ESOMEPRAZOLE [Concomitant]
     Route: 048
  6. LEVOTHYROXINE [Concomitant]
     Route: 048

REACTIONS (2)
  - Postoperative wound complication [Not Recovered/Not Resolved]
  - Wound haemorrhage [Not Recovered/Not Resolved]
